FAERS Safety Report 5740539-X (Version None)
Quarter: 2008Q2

REPORT INFORMATION
  Report Type: 
  Country: None (occurrence: None)
  Receive Date: 20080516
  Receipt Date: 20080506
  Transmission Date: 20081010
  Serious: Yes (Hospitalization, Other)
  Sender: FDA-Public Use
  Company Number: CH-GILEAD-2008-0016119

PATIENT
  Age: 50 Year
  Sex: Male

DRUGS (5)
  1. VIREAD [Suspect]
     Dates: start: 20061001, end: 20080326
  2. KALETRA [Suspect]
     Indication: HIV INFECTION
     Dates: start: 20061001, end: 20080326
  3. ZIAGEN [Suspect]
     Route: 048
     Dates: end: 20080326
  4. DARAPRIM [Suspect]
     Indication: TOXOPLASMOSIS
     Route: 048
     Dates: start: 20061101, end: 20080314
  5. CLINDAMYCIN HCL [Concomitant]
     Route: 048

REACTIONS (2)
  - LIVER FUNCTION TEST ABNORMAL [None]
  - PANCYTOPENIA [None]
